FAERS Safety Report 8820344 (Version 1)
Quarter: 2012Q4

REPORT INFORMATION
  Report Type: Report from Study
  Country: JP (occurrence: JP)
  Receive Date: 20121002
  Receipt Date: 20121002
  Transmission Date: 20130627
  Serious: Yes (Other)
  Sender: FDA-Public Use
  Company Number: JP-009507513-2012SP027239

PATIENT
  Age: 55 Year
  Sex: Female
  Weight: 49 kg

DRUGS (10)
  1. PEGINTERFERON ALFA-2B [Suspect]
     Indication: HEPATITIS C
     Dosage: 1.5 Microgram per kilogram, qw
     Route: 058
     Dates: start: 20120307, end: 20120814
  2. REBETOL [Suspect]
     Indication: HEPATITIS C
     Dosage: 600 mg, QD
     Route: 048
     Dates: start: 20120307, end: 20120430
  3. REBETOL [Suspect]
     Dosage: 400 mg, QD
     Route: 048
     Dates: start: 20120501
  4. REBETOL [Suspect]
     Dosage: 200 UNK, UNK
     Route: 048
     Dates: end: 20120814
  5. TELAVIC [Suspect]
     Indication: HEPATITIS C
     Dosage: 1500 mg, QD
     Route: 048
     Dates: start: 20120307, end: 20120529
  6. FEROTYM [Concomitant]
     Indication: IRON DEFICIENCY ANAEMIA
     Dosage: 100 mg, qd
     Route: 048
  7. EPADEL [Concomitant]
     Indication: HYPERLIPIDAEMIA
     Dosage: 1800 mg, qd
     Route: 048
  8. LIVALO [Concomitant]
     Indication: HYPERLIPIDAEMIA
     Dosage: 2 mg, qd
     Route: 048
  9. CLARITIN REDITABS TABLETS 10 MG [Concomitant]
     Indication: PROPHYLAXIS
     Dosage: 10 mg, QD
     Route: 048
  10. SEFTAC [Concomitant]
     Indication: GASTRITIS
     Dosage: 180 g, qd
     Route: 048

REACTIONS (5)
  - Anaemia [Not Recovered/Not Resolved]
  - Anaemia [Not Recovered/Not Resolved]
  - Anaemia [Not Recovered/Not Resolved]
  - Rash [Recovered/Resolved]
  - Rash [Recovered/Resolved]
